FAERS Safety Report 5378806-4 (Version None)
Quarter: 2007Q3

REPORT INFORMATION
  Report Type: 
  Country: None (occurrence: None)
  Receive Date: 20070705
  Receipt Date: 20070622
  Transmission Date: 20080115
  Serious: Yes (Hospitalization)
  Sender: FDA-Public Use
  Company Number: FR-SANOFI-SYNTHELABO-A02200701872

PATIENT
  Age: 89 Year
  Sex: Female

DRUGS (6)
  1. TARDYFERON [Concomitant]
     Indication: IRON DEFICIENCY ANAEMIA
     Route: 048
  2. NEXIUM [Concomitant]
     Indication: DRUG USE FOR UNKNOWN INDICATION
     Dosage: 2 UNIT
     Route: 048
  3. ATORVASTATIN CALCIUM [Concomitant]
     Indication: DRUG USE FOR UNKNOWN INDICATION
     Dosage: 1 UNIT
     Route: 048
  4. AMLODIPINE [Concomitant]
     Indication: ESSENTIAL HYPERTENSION
     Dosage: 1 UNIT
     Route: 048
  5. MEPRONIZINE [Concomitant]
     Indication: SLEEP DISORDER
     Route: 048
  6. PLAVIX [Suspect]
     Indication: ISCHAEMIC CARDIOMYOPATHY
     Dosage: UNK
     Route: 048
     Dates: end: 20061204

REACTIONS (4)
  - ANAEMIA [None]
  - EROSIVE OESOPHAGITIS [None]
  - HAEMATEMESIS [None]
  - MELAENA [None]
